FAERS Safety Report 24064879 (Version 1)
Quarter: 2024Q3

REPORT INFORMATION
  Report Type: Spontaneous
  Country: GB (occurrence: GB)
  Receive Date: 20240709
  Receipt Date: 20240709
  Transmission Date: 20241016
  Serious: Yes (Other)
  Sender: BRISTOL MYERS SQUIBB
  Company Number: GB-BRISTOL-MYERS SQUIBB COMPANY-2024-105215

PATIENT
  Age: 57 Year
  Sex: Female

DRUGS (1)
  1. CAMZYOS [Suspect]
     Active Substance: MAVACAMTEN
     Indication: Hypertrophic cardiomyopathy
     Dates: start: 2024

REACTIONS (3)
  - Ventricular arrhythmia [Unknown]
  - Device malfunction [Unknown]
  - Mitral valve incompetence [Recovering/Resolving]

NARRATIVE: CASE EVENT DATE: 20240627
